FAERS Safety Report 12362346 (Version 1)
Quarter: 2016Q2

REPORT INFORMATION
  Report Type: Spontaneous
  Country: US (occurrence: US)
  Receive Date: 20160512
  Receipt Date: 20160512
  Transmission Date: 20160815
  Serious: No
  Sender: FDA-Public Use
  Company Number: US-MYLANLABS-2015M1044981

PATIENT
  Age: 66 Year
  Sex: Male

DRUGS (3)
  1. BUPROPION HYDROCHLORIDE SR [Suspect]
     Active Substance: BUPROPION HYDROCHLORIDE
     Dosage: 100 MG, QD
     Route: 048
     Dates: start: 20150915, end: 201510
  2. BUPROPION HYDROCHLORIDE APOTEX [Suspect]
     Active Substance: BUPROPION HYDROCHLORIDE
     Indication: MAJOR DEPRESSION
     Dosage: 75 MG, UNK
     Route: 048
     Dates: start: 201510
  3. LEXAPRO [Concomitant]
     Active Substance: ESCITALOPRAM OXALATE
     Indication: DEPRESSION
     Dosage: UNK

REACTIONS (4)
  - Product substitution issue [None]
  - Visual impairment [Not Recovered/Not Resolved]
  - Eye swelling [None]
  - Therapy change [None]

NARRATIVE: CASE EVENT DATE: 201509
